FAERS Safety Report 9364906 (Version 2)
Quarter: 2013Q3

REPORT INFORMATION
  Report Type: Spontaneous
  Country: BR (occurrence: BR)
  Receive Date: 20130624
  Receipt Date: 20130708
  Transmission Date: 20140515
  Serious: Yes (Other)
  Sender: FDA-Public Use
  Company Number: BR-009507513-1306BRA010473

PATIENT
  Age: 25 Year
  Sex: Female
  Weight: 83 kg

DRUGS (2)
  1. IMPLANON [Suspect]
     Indication: CONTRACEPTION
     Dosage: UNK
     Route: 059
     Dates: start: 20021024, end: 200504
  2. IMPLANON [Suspect]
     Indication: MENSTRUAL CYCLE MANAGEMENT

REACTIONS (4)
  - Premature delivery [Recovered/Resolved]
  - Premature separation of placenta [Recovered/Resolved]
  - Road traffic accident [Unknown]
  - Maternal exposure before pregnancy [Unknown]
